FAERS Safety Report 9225931 (Version 1)
Quarter: 2013Q2

REPORT INFORMATION
  Report Type: Spontaneous
  Country: US (occurrence: US)
  Receive Date: 20130411
  Receipt Date: 20130411
  Transmission Date: 20140414
  Serious: Yes (Other)
  Sender: FDA-Public Use
  Company Number: US-ASTELLAS-2013US001374

PATIENT
  Age: 28 Year
  Sex: Female

DRUGS (1)
  1. PROTOPIC [Suspect]
     Indication: ACNE
     Dosage: 0.03 %, UNKNOWN/D
     Route: 061
     Dates: start: 2012

REACTIONS (4)
  - Off label use [Unknown]
  - Pain [Unknown]
  - Drug hypersensitivity [Unknown]
  - Insomnia [Unknown]
